FAERS Safety Report 5901621-7 (Version None)
Quarter: 2008Q3

REPORT INFORMATION
  Report Type: 
  Country: None (occurrence: None)
  Receive Date: 20080926
  Receipt Date: 20080926
  Transmission Date: 20090109
  Serious: Yes (Hospitalization)
  Sender: FDA-Public Use
  Company Number: None

PATIENT
  Age: 37 Year
  Sex: Female
  Weight: 79.3795 kg

DRUGS (2)
  1. FACTIVE [Suspect]
     Indication: BRONCHITIS
     Dosage: 7 PILLS 1 PER DAY PO
     Route: 048
     Dates: start: 20080917, end: 20080923
  2. FACTIVE [Suspect]
     Indication: PNEUMONIA
     Dosage: 7 PILLS 1 PER DAY PO
     Route: 048
     Dates: start: 20080917, end: 20080923

REACTIONS (9)
  - EYE SWELLING [None]
  - LIP SWELLING [None]
  - NASAL DISORDER [None]
  - PARAESTHESIA [None]
  - PARAESTHESIA ORAL [None]
  - PRURITUS [None]
  - RASH MACULAR [None]
  - SWELLING [None]
  - URTICARIA [None]
